FAERS Safety Report 22355419 (Version 1)
Quarter: 2023Q2

REPORT INFORMATION
  Report Type: Spontaneous
  Country: US (occurrence: US)
  Receive Date: 20230523
  Receipt Date: 20230523
  Transmission Date: 20230721
  Serious: Yes (Other)
  Sender: FDA-Public Use
  Company Number: US-ELI_LILLY_AND_COMPANY-US202305011599

PATIENT
  Age: 58 Year
  Sex: Female

DRUGS (1)
  1. HUMALOG [Suspect]
     Active Substance: INSULIN LISPRO
     Indication: Product used for unknown indication
     Dosage: UNK UNK, UNKNOWN
     Route: 065

REACTIONS (11)
  - Cerebrovascular accident [Unknown]
  - Speech disorder [Unknown]
  - Back pain [Unknown]
  - Gait inability [Unknown]
  - Renal disorder [Unknown]
  - Arthralgia [Unknown]
  - Multiple allergies [Unknown]
  - Obesity [Unknown]
  - Cystitis [Unknown]
  - Pain [Unknown]
  - Peripheral swelling [Unknown]
